FAERS Safety Report 5749181-8 (Version None)
Quarter: 2008Q2

REPORT INFORMATION
  Report Type: 
  Country: None (occurrence: None)
  Receive Date: 20080527
  Receipt Date: 20080513
  Transmission Date: 20081010
  Serious: Yes (Other)
  Sender: FDA-Public Use
  Company Number: IR-ROCHE-564199

PATIENT
  Age: 32 Year
  Sex: Female

DRUGS (4)
  1. CELLCEPT [Suspect]
     Indication: DRUG USE FOR UNKNOWN INDICATION
     Route: 065
     Dates: start: 20080201
  2. ISONIAZID [Concomitant]
  3. ETHAMBUTOL HYDROCHLORIDE [Concomitant]
  4. OFLOXACIN [Concomitant]

REACTIONS (3)
  - PLATELET COUNT DECREASED [None]
  - SPLENITIS [None]
  - WHITE BLOOD CELL COUNT DECREASED [None]
